FAERS Safety Report 4930210-6 (Version None)
Quarter: 2006Q1

REPORT INFORMATION
  Report Type: 
  Country: None (occurrence: None)
  Receive Date: 20060302
  Receipt Date: 20060124
  Transmission Date: 20060701
  Serious: Yes (Other)
  Sender: FDA-Public Use
  Company Number: JP-ROCHE-433779

PATIENT
  Age: 3 Year
  Sex: Male
  Weight: 15 kg

DRUGS (6)
  1. TAMIFLU [Suspect]
     Route: 048
     Dates: start: 20060121, end: 20060121
  2. MUCODYNE [Concomitant]
     Route: 048
     Dates: start: 20050524
  3. HOKUNALIN [Concomitant]
     Route: 061
     Dates: start: 20051029
  4. AMOXICILLIN [Concomitant]
     Route: 048
     Dates: start: 20060120, end: 20060122
  5. ACETAMINOPHEN [Concomitant]
     Route: 048
     Dates: start: 20060120, end: 20060122
  6. QVAR 40 [Concomitant]
     Route: 055
     Dates: start: 20050618

REACTIONS (3)
  - CORNEAL REFLEX DECREASED [None]
  - DELIRIUM [None]
  - HALLUCINATION [None]
